FAERS Safety Report 6361359-1 (Version None)
Quarter: 2009Q3

REPORT INFORMATION
  Report Type: 
  Country: None (occurrence: None)
  Receive Date: 20090918
  Receipt Date: 20090914
  Transmission Date: 20100115
  Serious: Yes (Other)
  Sender: FDA-Public Use
  Company Number: B0593328A

PATIENT
  Age: 38 Year
  Sex: Male

DRUGS (1)
  1. RELENZA [Suspect]
     Route: 042
     Dates: start: 20090905

REACTIONS (1)
  - LIVER FUNCTION TEST ABNORMAL [None]
